FAERS Safety Report 16385051 (Version 1)
Quarter: 2019Q2

REPORT INFORMATION
  Report Type: Spontaneous
  Country: JP (occurrence: JP)
  Receive Date: 20190603
  Receipt Date: 20190603
  Transmission Date: 20190711
  Serious: Yes (Other)
  Sender: FDA-Public Use
  Company Number: JP-PFIZER INC-2019111661

PATIENT
  Age: 9 Year
  Sex: Male

DRUGS (17)
  1. GENOTROPIN [Suspect]
     Active Substance: SOMATROPIN
     Dosage: 0.5 MG, SIX TIMES DAILY
     Route: 058
     Dates: start: 20100630, end: 20110531
  2. GENOTROPIN [Suspect]
     Active Substance: SOMATROPIN
     Dosage: 1.1 MG, SIX TIMES DAILY
     Route: 058
     Dates: start: 20120208, end: 20120410
  3. GENOTROPIN [Suspect]
     Active Substance: SOMATROPIN
     Dosage: 1.2 MG, SIX TIMES DAILY
     Route: 058
     Dates: start: 20170803, end: 20180516
  4. GENOTROPIN [Suspect]
     Active Substance: SOMATROPIN
     Dosage: 1.6 MG, SIX TIMES DAILY
     Route: 058
     Dates: start: 20140129, end: 20140812
  5. GENOTROPIN [Suspect]
     Active Substance: SOMATROPIN
     Dosage: 1.6 MG, SIX TIMES DAILY
     Route: 058
     Dates: start: 20180517, end: 20181128
  6. GENOTROPIN [Suspect]
     Active Substance: SOMATROPIN
     Dosage: 2.4 MG, SIX TIMES DAILY
     Route: 058
     Dates: start: 20160330, end: 20170329
  7. GENOTROPIN [Suspect]
     Active Substance: SOMATROPIN
     Dosage: 1.4 MG, SIX TIMES DAILY
     Route: 058
     Dates: start: 20130403, end: 20140128
  8. GENOTROPIN [Suspect]
     Active Substance: SOMATROPIN
     Dosage: 2 MG, SIX TIMES DAILY
     Route: 058
     Dates: start: 20150318, end: 20160329
  9. GENOTROPIN [Suspect]
     Active Substance: SOMATROPIN
     Indication: DWARFISM
     Dosage: 0.47 MG/KG, UNK
     Route: 058
  10. GENOTROPIN [Suspect]
     Active Substance: SOMATROPIN
     Dosage: 0.9 MG, SIX TIMES DAILY
     Route: 058
     Dates: start: 20120104, end: 20120207
  11. GENOTROPIN [Suspect]
     Active Substance: SOMATROPIN
     Dosage: 1.2 MG, SIX TIMES DAILY
     Route: 058
     Dates: start: 20120411, end: 20130402
  12. GENOTROPIN [Suspect]
     Active Substance: SOMATROPIN
     Dosage: 1.8 MG, SIX TIMES DAILY
     Route: 058
     Dates: start: 20170330, end: 20170802
  13. GENOTROPIN [Suspect]
     Active Substance: SOMATROPIN
     Dosage: 0.6 MG, SIX TIMES DAILY
     Route: 058
     Dates: start: 20110601, end: 20110726
  14. GENOTROPIN [Suspect]
     Active Substance: SOMATROPIN
     Dosage: 1.8 MG, SIX TIMES DAILY
     Route: 058
     Dates: start: 20140813, end: 20150317
  15. GENOTROPIN [Suspect]
     Active Substance: SOMATROPIN
     Dosage: 1.8 MG, SIX TIMES DAILY
     Route: 058
     Dates: start: 20181129, end: 20190306
  16. GENOTROPIN [Suspect]
     Active Substance: SOMATROPIN
     Dosage: 2 MG, SIX TIMES DAILY
     Route: 058
     Dates: start: 20190307
  17. GENOTROPIN [Suspect]
     Active Substance: SOMATROPIN
     Dosage: 0.8 MG, SIX TIMES DAILY
     Route: 058
     Dates: start: 20110727, end: 20120103

REACTIONS (4)
  - Increased appetite [Recovering/Resolving]
  - Hepatic function abnormal [Recovering/Resolving]
  - Obesity [Not Recovered/Not Resolved]
  - Hepatic steatosis [Recovering/Resolving]

NARRATIVE: CASE EVENT DATE: 20150204
